FAERS Safety Report 18595559 (Version 6)
Quarter: 2023Q1

REPORT INFORMATION
  Report Type: Report from Study
  Country: CO (occurrence: CO)
  Receive Date: 20201209
  Receipt Date: 20230315
  Transmission Date: 20230418
  Serious: Yes (Other)
  Sender: FDA-Public Use
  Company Number: NVSC2019CO080820

PATIENT
  Age: 58 Year
  Sex: Female

DRUGS (12)
  1. TAFINLAR [Suspect]
     Active Substance: DABRAFENIB MESYLATE
     Indication: Metastatic malignant melanoma
     Dosage: 2 DF, Q12H (2 TABLETS OF 75 MG/150 MG)
     Route: 048
     Dates: start: 20190206, end: 202209
  2. TAFINLAR [Suspect]
     Active Substance: DABRAFENIB MESYLATE
     Dosage: 150 MG, Q12H (CAPSULE OF 75 MG)
     Route: 048
     Dates: start: 20190210
  3. TAFINLAR [Suspect]
     Active Substance: DABRAFENIB MESYLATE
     Dosage: UNK (150 MG/8)
     Route: 048
  4. TAFINLAR [Suspect]
     Active Substance: DABRAFENIB MESYLATE
     Dosage: UNK, QD
     Route: 048
  5. TAFINLAR [Suspect]
     Active Substance: DABRAFENIB MESYLATE
     Dosage: 2 DOSAGE FORM, Q12H
     Route: 048
  6. MEKINIST [Suspect]
     Active Substance: TRAMETINIB DIMETHYL SULFOXIDE
     Indication: Metastatic malignant melanoma
     Dosage: 2 MG, QD (ONE TABLET OF 2 MG)
     Route: 048
     Dates: start: 20190206
  7. MEKINIST [Suspect]
     Active Substance: TRAMETINIB DIMETHYL SULFOXIDE
     Dosage: 2 MG, QD (CAPSULE)
     Route: 048
     Dates: start: 20190210
  8. MEKINIST [Suspect]
     Active Substance: TRAMETINIB DIMETHYL SULFOXIDE
     Dosage: 2.5 MG, QD
     Route: 048
  9. MEKINIST [Suspect]
     Active Substance: TRAMETINIB DIMETHYL SULFOXIDE
     Dosage: 2 MG, QD (TABLET)
     Route: 048
  10. MEKINIST [Suspect]
     Active Substance: TRAMETINIB DIMETHYL SULFOXIDE
     Dosage: UNK, QD
     Route: 048
  11. MEKINIST [Suspect]
     Active Substance: TRAMETINIB DIMETHYL SULFOXIDE
     Dosage: 1 DOSAGE FORM, Q12H
     Route: 048
     Dates: start: 201902, end: 202209
  12. MEKINIST [Suspect]
     Active Substance: TRAMETINIB DIMETHYL SULFOXIDE
     Dosage: 1 DOSAGE FORM, Q12H
     Route: 048

REACTIONS (33)
  - Basal cell carcinoma [Unknown]
  - Concomitant disease progression [Unknown]
  - Pancreatitis [Unknown]
  - Plantar fasciitis [Unknown]
  - Exostosis [Unknown]
  - Pain [Unknown]
  - Dysgeusia [Unknown]
  - Haematocrit decreased [Unknown]
  - Haemoglobin decreased [Unknown]
  - Fatigue [Unknown]
  - Alopecia [Unknown]
  - Lymphadenitis [Unknown]
  - Glossitis [Unknown]
  - Segmental diverticular colitis [Unknown]
  - Adverse reaction [Unknown]
  - Fear [Unknown]
  - Bone pain [Recovered/Resolved]
  - Illness [Unknown]
  - Colitis [Unknown]
  - Arthralgia [Not Recovered/Not Resolved]
  - Chills [Unknown]
  - Arthralgia [Recovered/Resolved]
  - Chills [Recovered/Resolved]
  - Vision blurred [Recovered/Resolved]
  - Pyrexia [Recovered/Resolved]
  - Pyrexia [Unknown]
  - Gingival bleeding [Unknown]
  - Headache [Unknown]
  - Vision blurred [Unknown]
  - Malaise [Unknown]
  - Incorrect dosage administered [Unknown]
  - Dizziness [Not Recovered/Not Resolved]
  - Nausea [Not Recovered/Not Resolved]

NARRATIVE: CASE EVENT DATE: 20200125
